FAERS Safety Report 6742823-X (Version None)
Quarter: 2010Q2

REPORT INFORMATION
  Report Type: 
  Country: None (occurrence: None)
  Receive Date: 20100525
  Receipt Date: 20100518
  Transmission Date: 20101027
  Serious: Yes (Other)
  Sender: FDA-Public Use
  Company Number: A0860195A

PATIENT
  Age: 80 Year
  Sex: Female

DRUGS (2)
  1. CITRUCEL       METHYLCELLULOSE SUSPENSION FOR INJECTION [Suspect]
     Indication: DRUG USE FOR UNKNOWN INDICATION
  2. WARFARIN SODIUM [Suspect]
     Indication: DRUG USE FOR UNKNOWN INDICATION

REACTIONS (2)
  - BLOOD TEST ABNORMAL [None]
  - PLASMA VISCOSITY DECREASED [None]
